FAERS Safety Report 13926284 (Version 3)
Quarter: 2017Q4

REPORT INFORMATION
  Report Type: Spontaneous
  Country: US (occurrence: US)
  Receive Date: 20170831
  Receipt Date: 20171001
  Transmission Date: 20180320
  Serious: Yes (Death, Hospitalization)
  Sender: FDA-Public Use
  Company Number: US-ALLERGAN-1748709US

PATIENT
  Age: 26 Year
  Sex: Male

DRUGS (1)
  1. VRAYLAR [Suspect]
     Active Substance: CARIPRAZINE
     Indication: SCHIZOPHRENIA
     Dosage: 6 MG, QD
     Route: 048
     Dates: start: 20170414, end: 20170518

REACTIONS (7)
  - Pleural effusion [Fatal]
  - Oropharyngeal pain [Unknown]
  - Weight decreased [Recovering/Resolving]
  - Decreased appetite [Unknown]
  - Pneumothorax [Fatal]
  - Dysphagia [Unknown]
  - Haemothorax [Fatal]

NARRATIVE: CASE EVENT DATE: 201704
